FAERS Safety Report 17936250 (Version 1)
Quarter: 2020Q2

REPORT INFORMATION
  Report Type: Spontaneous
  Country: US (occurrence: US)
  Receive Date: 20200624
  Receipt Date: 20200624
  Transmission Date: 20200714
  Serious: Yes (Hospitalization)
  Sender: FDA-Public Use
  Company Number: None

PATIENT
  Age: 79 Year
  Sex: Male
  Weight: 72.5 kg

DRUGS (5)
  1. REMDESIVIR 100 MG/20ML [Suspect]
     Active Substance: REMDESIVIR
     Indication: COVID-19
     Route: 041
     Dates: start: 20200527, end: 20200531
  2. CEFEPIME 1000 MG [Concomitant]
     Dates: start: 20200526, end: 20200530
  3. DEXAMETHASONE 20 MG [Concomitant]
     Dates: start: 20200527, end: 20200603
  4. LINEZOLID 600 MG [Concomitant]
     Active Substance: LINEZOLID
     Dates: start: 20200530, end: 20200602
  5. TOCILIZUMAB 600 MG [Concomitant]
     Dates: start: 20200528, end: 20200529

REACTIONS (1)
  - Liver function test increased [None]

NARRATIVE: CASE EVENT DATE: 20200602
